FAERS Safety Report 4328198-4 (Version None)
Quarter: 2004Q1

REPORT INFORMATION
  Report Type: 
  Country: None (occurrence: None)
  Receive Date: 20040325
  Receipt Date: 20040105
  Transmission Date: 20041129
  Serious: No
  Sender: FDA-Public Use
  Company Number: USA-2003-0012341

PATIENT
  Sex: Female

DRUGS (1)
  1. SPECTRACEF [Suspect]
     Indication: SKIN INFECTION
     Dosage: 200 MG, BID

REACTIONS (1)
  - ABDOMINAL PAIN UPPER [None]
